FAERS Safety Report 25170302 (Version 2)
Quarter: 2025Q2

REPORT INFORMATION
  Report Type: Spontaneous
  Country: US (occurrence: US)
  Receive Date: 20250408
  Receipt Date: 20250410
  Transmission Date: 20250716
  Serious: No
  Sender: SANDOZ
  Company Number: US-SANDOZ-SDZ2025US021071

PATIENT
  Sex: Female

DRUGS (3)
  1. AZOPT [Suspect]
     Active Substance: BRINZOLAMIDE
     Route: 065
  2. AZOPT [Suspect]
     Active Substance: BRINZOLAMIDE
     Indication: Product used for unknown indication
     Route: 065
  3. AZOPT [Suspect]
     Active Substance: BRINZOLAMIDE
     Route: 065

REACTIONS (6)
  - Eye discharge [Unknown]
  - Ocular discomfort [Unknown]
  - Eye irritation [Unknown]
  - Poor quality product administered [Unknown]
  - Wrong technique in product usage process [Unknown]
  - Product physical issue [Unknown]
